FAERS Safety Report 22832707 (Version 2)
Quarter: 2023Q4

REPORT INFORMATION
  Report Type: Spontaneous
  Country: CA (occurrence: CA)
  Receive Date: 20230817
  Receipt Date: 20231027
  Transmission Date: 20240109
  Serious: Yes (Hospitalization, Other)
  Sender: FDA-Public Use
  Company Number: CA-OTSUKA-2023_021598

PATIENT
  Age: 74 Year
  Sex: Female

DRUGS (1)
  1. INQOVI [Suspect]
     Active Substance: CEDAZURIDINE\DECITABINE
     Indication: Myelodysplastic syndrome
     Dosage: (35 MG DECITABINE AND 100 MG CEDAZURIDINE)
     Route: 048
     Dates: start: 20230228

REACTIONS (8)
  - Mucocutaneous ulceration [Unknown]
  - Haemoptysis [Unknown]
  - Asthenia [Unknown]
  - Decreased appetite [Unknown]
  - Pancytopenia [Unknown]
  - Stomatitis [Unknown]
  - Bacteraemia [Unknown]
  - Febrile neutropenia [Unknown]

NARRATIVE: CASE EVENT DATE: 20230301
